FAERS Safety Report 24164099 (Version 2)
Quarter: 2024Q3

REPORT INFORMATION
  Report Type: Report from Study
  Country: IT (occurrence: IT)
  Receive Date: 20240801
  Receipt Date: 20240819
  Transmission Date: 20241017
  Serious: Yes (Other)
  Sender: PFIZER
  Company Number: IT-ROCHE-2637797

PATIENT
  Age: 55 Year
  Sex: Female

DRUGS (9)
  1. VINCRISTINE SULFATE [Suspect]
     Active Substance: VINCRISTINE SULFATE
     Indication: Follicular lymphoma
     Dosage: 1MG/1ML
     Route: 065
     Dates: start: 20190827, end: 20191218
  2. OBINUTUZUMAB [Suspect]
     Active Substance: OBINUTUZUMAB
     Indication: Follicular lymphoma
     Dosage: 1000 MG, MONTHLY
     Route: 042
  3. OBINUTUZUMAB [Suspect]
     Active Substance: OBINUTUZUMAB
     Dosage: FREQ:21 D;ON DAY 1, 8, 15 OF CYCLE 1 AND DAY 1 OF CYCLES 2-6 OR 2-8 (AS PER PROTOCOL).
     Route: 042
     Dates: start: 20200310
  4. PREDNISOLONE [Concomitant]
     Active Substance: PREDNISOLONE
     Dosage: 500 MG
     Dates: start: 20200716, end: 20200721
  5. CLARITROMICINA [CLARITHROMYCIN] [Concomitant]
     Dosage: UNK
     Dates: start: 19700101
  6. CLARITROMICINA [CLARITHROMYCIN] [Concomitant]
     Dosage: UNK
     Dates: start: 20220122, end: 20220129
  7. FILGRASTIM [Concomitant]
     Active Substance: FILGRASTIM
     Dosage: 3000 IU
     Dates: start: 20200509
  8. FILGRASTIM [Concomitant]
     Active Substance: FILGRASTIM
     Dosage: 3000 IU
     Dates: start: 20200529
  9. FILGRASTIM [Concomitant]
     Active Substance: FILGRASTIM
     Dosage: 3000 IU
     Dates: start: 20200622

REACTIONS (7)
  - Neutropenia [Recovered/Resolved]
  - Neutropenia [Recovered/Resolved]
  - Polyneuropathy [Recovered/Resolved]
  - COVID-19 [Recovered/Resolved]
  - Diarrhoea [Recovered/Resolved]
  - Osteoarthritis [Recovered/Resolved]
  - Cystitis [Recovered/Resolved]

NARRATIVE: CASE EVENT DATE: 20200508
